FAERS Safety Report 10888534 (Version 1)
Quarter: 2015Q1

REPORT INFORMATION
  Report Type: Spontaneous
  Country: US (occurrence: US)
  Receive Date: 20150305
  Receipt Date: 20150305
  Transmission Date: 20150721
  Serious: Yes (Other)
  Sender: FDA-Public Use
  Company Number: US-JNJFOC-20150215912

PATIENT
  Age: 58 Year
  Sex: Male
  Weight: 77.11 kg

DRUGS (3)
  1. XARELTO [Suspect]
     Active Substance: RIVAROXABAN
     Indication: PULMONARY THROMBOSIS
     Route: 065
     Dates: start: 201408
  2. HUMIRA [Suspect]
     Active Substance: ADALIMUMAB
     Indication: CROHN^S DISEASE
     Route: 050
     Dates: start: 20140816
  3. HUMIRA [Suspect]
     Active Substance: ADALIMUMAB
     Indication: CROHN^S DISEASE
     Route: 050
     Dates: start: 20140617, end: 2014

REACTIONS (1)
  - Arthropod sting [Recovering/Resolving]

NARRATIVE: CASE EVENT DATE: 20140822
